FAERS Safety Report 6056189-4 (Version None)
Quarter: 2009Q1

REPORT INFORMATION
  Report Type: 
  Country: None (occurrence: None)
  Receive Date: 20090129
  Receipt Date: 20090114
  Transmission Date: 20090719
  Serious: Yes (Hospitalization, Other)
  Sender: FDA-Public Use
  Company Number: US-CELGENEUS-163-20785-09010659

PATIENT
  Sex: Female

DRUGS (3)
  1. THALOMID [Suspect]
     Indication: MULTIPLE MYELOMA
     Route: 048
     Dates: start: 20080125, end: 20080101
  2. THALOMID [Suspect]
     Route: 048
     Dates: start: 20070110, end: 20070601
  3. THALOMID [Suspect]
     Route: 048
     Dates: start: 20070807, end: 20071201

REACTIONS (3)
  - CEREBROVASCULAR ACCIDENT [None]
  - HYPOACUSIS [None]
  - VISUAL ACUITY REDUCED [None]
